FAERS Safety Report 5396963-0 (Version None)
Quarter: 2007Q3

REPORT INFORMATION
  Report Type: 
  Country: None (occurrence: None)
  Receive Date: 20070718
  Receipt Date: 20061130
  Transmission Date: 20080115
  Serious: Yes (Other)
  Sender: FDA-Public Use
  Company Number: 2006149489

PATIENT
  Sex: Female

DRUGS (2)
  1. CELEBREX [Suspect]
     Dosage: 200 MG (200 MG, 1 IN 1 D)
     Dates: start: 19991001
  2. VIOXX [Suspect]
     Indication: PAIN
     Dosage: 25 MG (25 MG, 1 IN 1 D)
     Dates: start: 19990501, end: 19990901

REACTIONS (1)
  - MYOCARDIAL INFARCTION [None]
